FAERS Safety Report 18292604 (Version 1)
Quarter: 2020Q3

REPORT INFORMATION
  Report Type: Spontaneous
  Country: GB (occurrence: GB)
  Receive Date: 20200921
  Receipt Date: 20200921
  Transmission Date: 20201103
  Serious: Yes (Disabling, Other)
  Sender: FDA-Public Use
  Company Number: GB-PFIZER INC-2020362147

PATIENT
  Age: 58 Year
  Sex: Male
  Weight: 89 kg

DRUGS (3)
  1. AMLODIPINE BESILATE [Suspect]
     Active Substance: AMLODIPINE BESYLATE
     Dosage: 5 MG
     Route: 048
  2. NYSTATIN. [Concomitant]
     Active Substance: NYSTATIN
     Dosage: 4 ML, 1X/DAY
     Route: 048
     Dates: start: 20200603
  3. RAMIPRIL. [Concomitant]
     Active Substance: RAMIPRIL
     Dosage: 2.5 MG, 1X/DAY
     Dates: start: 20200901

REACTIONS (2)
  - Pollakiuria [Recovered/Resolved]
  - Palpitations [Recovered/Resolved]

NARRATIVE: CASE EVENT DATE: 20200801
